FAERS Safety Report 8204222-3 (Version None)
Quarter: 2012Q1

REPORT INFORMATION
  Report Type: 
  Country: None (occurrence: None)
  Receive Date: 20120313
  Receipt Date: 20120305
  Transmission Date: 20120608
  Serious: Yes (Hospitalization)
  Sender: FDA-Public Use
  Company Number: CA-UCBSA-052715

PATIENT
  Age: 74 Year
  Sex: Male
  Weight: 79.4 kg

DRUGS (9)
  1. AMLODIPINE [Concomitant]
     Route: 048
  2. DIMA CON [Concomitant]
     Route: 048
  3. CIMZIA [Suspect]
     Indication: RHEUMATOID ARTHRITIS
     Route: 058
     Dates: start: 20110822, end: 20120305
  4. ENALAPRIL MALEATE [Concomitant]
     Route: 048
  5. METFORMIN HYDROCHLORIDE [Concomitant]
     Route: 048
  6. CIMZIA [Suspect]
     Dosage: WEEKS 0-2-4
     Route: 058
     Dates: start: 20110711, end: 20110808
  7. METOPROLOL SUCCINATE [Concomitant]
     Route: 048
  8. PREDNISONE [Concomitant]
     Route: 048
  9. HCL [Concomitant]
     Route: 048

REACTIONS (2)
  - DIARRHOEA [None]
  - SEPTIC SHOCK [None]
